FAERS Safety Report 5403282-2 (Version None)
Quarter: 2007Q3

REPORT INFORMATION
  Report Type: 
  Country: None (occurrence: None)
  Receive Date: 20070730
  Receipt Date: 20070727
  Transmission Date: 20080115
  Serious: Yes (Hospitalization)
  Sender: FDA-Public Use
  Company Number: 100#08#2007-02660

PATIENT
  Age: 49 Year
  Sex: Female

DRUGS (2)
  1. ASCORBIC ACID [Suspect]
     Indication: DRUG USE FOR UNKNOWN INDICATION
     Dosage: 4 G (DAILY)
  2. IBUPROFEN [Suspect]
     Indication: MIGRAINE
     Dosage: UP TO 2000 MG (DAILY)

REACTIONS (8)
  - CALCINOSIS [None]
  - DEHYDRATION [None]
  - HAEMODIALYSIS [None]
  - INCORRECT DOSE ADMINISTERED [None]
  - ORTHOSTATIC HYPOTENSION [None]
  - OXALOSIS [None]
  - RENAL FAILURE ACUTE [None]
  - RENAL TUBULAR NECROSIS [None]
